FAERS Safety Report 4673167-8 (Version None)
Quarter: 2005Q2

REPORT INFORMATION
  Report Type: 
  Country: None (occurrence: None)
  Receive Date: 20050525
  Receipt Date: 20050516
  Transmission Date: 20051028
  Serious: Yes (Other)
  Sender: FDA-Public Use
  Company Number: PHEH2005US05515

PATIENT
  Age: 80 Year
  Sex: Female

DRUGS (9)
  1. ZELNORM [Suspect]
     Indication: IRRITABLE BOWEL SYNDROME
     Dosage: 2 MG, BID
     Route: 048
     Dates: start: 20050501, end: 20050501
  2. ZELNORM [Suspect]
     Dosage: 6 MG, BID
     Route: 048
     Dates: start: 20050501
  3. ANTIHYPERTENSIVE DRUGS [Concomitant]
  4. PLAVIX [Concomitant]
  5. PRILOSEC [Concomitant]
  6. ZESTRIL [Concomitant]
  7. BENICAR [Concomitant]
  8. LEXAPRO [Concomitant]
  9. LIBRIUM [Concomitant]

REACTIONS (7)
  - BACK PAIN [None]
  - CONDITION AGGRAVATED [None]
  - DIFFICULTY IN WALKING [None]
  - FALL [None]
  - HYPERTENSION [None]
  - LIMB INJURY [None]
  - SOFT TISSUE DISORDER [None]
